FAERS Safety Report 4681586-9 (Version None)
Quarter: 2005Q2

REPORT INFORMATION
  Report Type: 
  Country: None (occurrence: None)
  Receive Date: 20050602
  Receipt Date: 20050517
  Transmission Date: 20051028
  Serious: Yes (Other)
  Sender: FDA-Public Use
  Company Number: US-YAMANOUCHI-YPA20050161

PATIENT
  Sex: Male

DRUGS (1)
  1. VESICARE [Suspect]
     Dates: start: 20050401

REACTIONS (1)
  - WEIGHT DECREASED [None]
